FAERS Safety Report 6111223-8 (Version None)
Quarter: 2009Q1

REPORT INFORMATION
  Report Type: 
  Country: None (occurrence: None)
  Receive Date: 20090309
  Receipt Date: 20090302
  Transmission Date: 20090719
  Serious: Yes (Life-Threatening)
  Sender: FDA-Public Use
  Company Number: 2009SP003204

PATIENT
  Age: 4 Year
  Sex: Female

DRUGS (8)
  1. TEMOZOLOMIDE [Suspect]
     Indication: GLIOMA
     Dosage: 55 MG; ; PO
     Route: 048
     Dates: start: 20090127, end: 20090207
  2. TEMOZOLOMIDE [Suspect]
  3. TEMOZOLOMIDE [Suspect]
  4. DEXAMETHASONE TAB [Suspect]
     Indication: DRUG USE FOR UNKNOWN INDICATION
     Dosage: 2 MG; QD; IV, 4 MG; QD; IV, 2 MG; QD; PO
     Dates: start: 20090121
  5. DEXAMETHASONE TAB [Suspect]
     Indication: DRUG USE FOR UNKNOWN INDICATION
     Dosage: 2 MG; QD; IV, 4 MG; QD; IV, 2 MG; QD; PO
     Dates: start: 20090124
  6. DEXAMETHASONE TAB [Suspect]
     Indication: DRUG USE FOR UNKNOWN INDICATION
     Dosage: 2 MG; QD; IV, 4 MG; QD; IV, 2 MG; QD; PO
     Dates: start: 20090126
  7. DEXAMETHASONE TAB [Suspect]
     Indication: DRUG USE FOR UNKNOWN INDICATION
     Dosage: 2 MG; QD; IV, 4 MG; QD; IV, 2 MG; QD; PO
     Dates: start: 20090126
  8. TEMOZOLOMIDE [Suspect]

REACTIONS (2)
  - CAECITIS [None]
  - PNEUMATOSIS INTESTINALIS [None]
